FAERS Safety Report 11283577 (Version 1)
Quarter: 2015Q3

REPORT INFORMATION
  Report Type: Spontaneous
  Country: FR (occurrence: FR)
  Receive Date: 20150720
  Receipt Date: 20150720
  Transmission Date: 20151125
  Serious: Yes (Hospitalization)
  Sender: FDA-Public Use
  Company Number: FR-TEVA-577217ISR

PATIENT
  Age: 11 Year
  Sex: Male
  Weight: 55 kg

DRUGS (3)
  1. CERUBIDINE [Suspect]
     Active Substance: DAUNORUBICIN HYDROCHLORIDE
     Dosage: 4 INJECTIONS
     Route: 042
     Dates: start: 20141121, end: 20141206
  2. VINCRISTINE TEVA 0.1 POUR CENT (1 MG/ML) [Suspect]
     Active Substance: VINCRISTINE
     Dosage: 4 INJECTIONS
     Route: 042
     Dates: start: 20141120, end: 20141212
  3. GLIVEC [Suspect]
     Active Substance: IMATINIB MESYLATE
     Dosage: 500 MILLIGRAM DAILY;
     Route: 048
     Dates: start: 20141124, end: 20141204

REACTIONS (3)
  - Coagulation factor decreased [Recovered/Resolved]
  - Disseminated intravascular coagulation [None]
  - Epistaxis [Recovered/Resolved]

NARRATIVE: CASE EVENT DATE: 20141128
